FAERS Safety Report 17807324 (Version 1)
Quarter: 2020Q2

REPORT INFORMATION
  Report Type: Spontaneous
  Country: FR (occurrence: FR)
  Receive Date: 20200520
  Receipt Date: 20200520
  Transmission Date: 20200714
  Serious: Yes (Other)
  Sender: FDA-Public Use
  Company Number: NVSC2020FR137773

PATIENT
  Age: 30 Year
  Sex: Male

DRUGS (3)
  1. LEVOTHYROX [Concomitant]
     Active Substance: LEVOTHYROXINE
     Indication: HYPOTHYROIDISM
     Dosage: INCONNUE
     Route: 048
  2. LOXAPAC [Interacting]
     Active Substance: LOXAPINE
     Indication: INSOMNIA
     Dosage: 1 DF, (ONCE/SINGLE)
     Route: 048
     Dates: start: 20200124, end: 20200124
  3. QUETIAPINE. [Suspect]
     Active Substance: QUETIAPINE
     Indication: BIPOLAR DISORDER
     Dosage: UNK
     Route: 048

REACTIONS (4)
  - Facial paralysis [Recovered/Resolved]
  - Dyskinesia [Recovered/Resolved]
  - Dysarthria [Recovered/Resolved]
  - Laryngospasm [Recovered/Resolved]

NARRATIVE: CASE EVENT DATE: 20200125
